FAERS Safety Report 7020061-3 (Version None)
Quarter: 2010Q3

REPORT INFORMATION
  Report Type: 
  Country: None (occurrence: None)
  Receive Date: 20100929
  Receipt Date: 20100923
  Transmission Date: 20110219
  Serious: Yes (Death, Other)
  Sender: FDA-Public Use
  Company Number: US-CEPHALON-2010005087

PATIENT
  Age: 46 Year
  Sex: Male

DRUGS (3)
  1. AMRIX [Suspect]
  2. DOXAPINE [Suspect]
  3. MIRTAZAPINE [Suspect]

REACTIONS (3)
  - AGITATION [None]
  - DELIRIUM [None]
  - SCHIZOAFFECTIVE DISORDER [None]
